FAERS Safety Report 7813532-0 (Version None)
Quarter: 2011Q4

REPORT INFORMATION
  Report Type: 
  Country: None (occurrence: None)
  Receive Date: 20111014
  Receipt Date: 20111006
  Transmission Date: 20120403
  Serious: No
  Sender: FDA-Public Use
  Company Number: US-BIOGENIDEC-2011BI038382

PATIENT
  Sex: Female

DRUGS (5)
  1. REBIF [Concomitant]
     Indication: MULTIPLE SCLEROSIS
  2. TYSABRI [Suspect]
     Route: 042
     Dates: start: 20041101, end: 20050201
  3. TYSABRI [Suspect]
     Route: 042
     Dates: start: 20070222, end: 20080903
  4. PRILOSEC [Concomitant]
     Indication: PROPHYLAXIS
     Route: 048
     Dates: start: 20080101, end: 20080101
  5. TYSABRI [Suspect]
     Indication: MULTIPLE SCLEROSIS
     Route: 042
     Dates: start: 20081031

REACTIONS (2)
  - MEMORY IMPAIRMENT [None]
  - GAIT DISTURBANCE [None]
